FAERS Safety Report 4837950-8 (Version None)
Quarter: 2005Q4

REPORT INFORMATION
  Report Type: 
  Country: None (occurrence: None)
  Receive Date: 20051128
  Receipt Date: 20051115
  Transmission Date: 20060501
  Serious: Yes (Other)
  Sender: FDA-Public Use
  Company Number: BR-ROCHE-424963

PATIENT
  Age: 34 Year
  Sex: Female

DRUGS (2)
  1. PEG-INTERFERON A-2A (RO 25-8310) [Suspect]
     Route: 065
     Dates: start: 20010315, end: 20010915
  2. RIBAVIRIN [Suspect]
     Route: 065
     Dates: start: 20010315, end: 20010915

REACTIONS (3)
  - COELIAC DISEASE [None]
  - IRON DEFICIENCY ANAEMIA [None]
  - OSTEOPENIA [None]
